FAERS Safety Report 16041335 (Version 1)
Quarter: 2019Q1

REPORT INFORMATION
  Report Type: Spontaneous
  Country: US (occurrence: US)
  Receive Date: 20190306
  Receipt Date: 20190306
  Transmission Date: 20190418
  Serious: Yes (Other)
  Sender: FDA-Public Use
  Company Number: US-AKORN PHARMACEUTICALS-2018AKN01911

PATIENT
  Sex: Male
  Weight: 83.9 kg

DRUGS (2)
  1. MYORISAN [Suspect]
     Active Substance: ISOTRETINOIN
     Indication: ACNE
     Dosage: 30 MG, 2X/DAY
     Route: 048
     Dates: start: 2018, end: 201811
  2. MYORISAN [Suspect]
     Active Substance: ISOTRETINOIN
     Indication: SCAR

REACTIONS (3)
  - Seizure [Recovered/Resolved]
  - Insomnia [Unknown]
  - Muscle fatigue [Recovered/Resolved]

NARRATIVE: CASE EVENT DATE: 2018
